FAERS Safety Report 17515800 (Version 1)
Quarter: 2020Q1

REPORT INFORMATION
  Report Type: Spontaneous
  Country: US (occurrence: US)
  Receive Date: 20200309
  Receipt Date: 20200309
  Transmission Date: 20200409
  Serious: No
  Sender: FDA-Public Use
  Company Number: US-JNJFOC-20200234171

PATIENT
  Sex: Female
  Weight: 70.37 kg

DRUGS (3)
  1. XARELTO [Suspect]
     Active Substance: RIVAROXABAN
     Indication: PULMONARY THROMBOSIS
     Dosage: PRESCRIPTION NUMBER/1125416R
     Route: 048
     Dates: start: 2017
  2. COLESTIPOL HCL [Concomitant]
     Active Substance: COLESTIPOL HYDROCHLORIDE
     Indication: CHOLECYSTECTOMY
  3. PREDNISONE. [Suspect]
     Active Substance: PREDNISONE
     Indication: MYALGIA
     Route: 065

REACTIONS (6)
  - Abnormal weight gain [Not Recovered/Not Resolved]
  - Fall [Recovered/Resolved]
  - Gastrointestinal disorder [Not Recovered/Not Resolved]
  - Upper respiratory tract infection [Unknown]
  - Myalgia [Not Recovered/Not Resolved]
  - Spinal stenosis [Not Recovered/Not Resolved]

NARRATIVE: CASE EVENT DATE: 2019
